FAERS Safety Report 20609959 (Version 1)
Quarter: 2022Q1

REPORT INFORMATION
  Report Type: Spontaneous
  Country: US (occurrence: None)
  Receive Date: 20220318
  Receipt Date: 20220318
  Transmission Date: 20220424
  Serious: Yes (Other)
  Sender: FDA-Public Use
  Company Number: US-Hikma Pharmaceuticals USA Inc.-US-H14001-22-00750

PATIENT
  Age: 49 Year
  Sex: Female

DRUGS (3)
  1. DIGOXIN [Suspect]
     Active Substance: DIGOXIN
     Indication: Product used for unknown indication
     Dosage: UNKNOWN
     Route: 065
     Dates: start: 202202
  2. TREPROSTINIL SODIUM [Suspect]
     Active Substance: TREPROSTINIL SODIUM
     Indication: Pulmonary arterial hypertension
     Dosage: 18 MICROGRAMS (THREE BREATHS), FOUR TIMES A DAY (QID)
     Dates: start: 20220224
  3. ADCIRCA [Suspect]
     Active Substance: TADALAFIL
     Indication: Pulmonary arterial hypertension
     Dosage: 40 MG (IN MORNING) AND 20MG (IN EVENING)
     Route: 048
     Dates: start: 20220212

REACTIONS (8)
  - Pulmonary oedema [Unknown]
  - Chest discomfort [Unknown]
  - Paraesthesia [Unknown]
  - Nausea [Unknown]
  - Chills [Unknown]
  - Dizziness [Unknown]
  - Cough [Unknown]
  - Pruritus [Unknown]

NARRATIVE: CASE EVENT DATE: 20220201
